FAERS Safety Report 12985080 (Version 3)
Quarter: 2016Q4

REPORT INFORMATION
  Report Type: Spontaneous
  Country: US (occurrence: US)
  Receive Date: 20161129
  Receipt Date: 20161219
  Transmission Date: 20170207
  Serious: Yes (Other)
  Sender: FDA-Public Use
  Company Number: US-TAIHO ONCOLOGY INC-EU-2016-02493

PATIENT
  Sex: Male
  Weight: 53.12 kg

DRUGS (19)
  1. SYSTANE (HYPROMELLOSE 2910 (4000 MPA.S)) [Concomitant]
     Active Substance: HYPROMELLOSE 2910 (4000 MPA.S)
     Dosage: 0.4-0.3% DROPS
     Route: 047
  2. VALTREX [Concomitant]
     Active Substance: VALACYCLOVIR HYDROCHLORIDE
     Dosage: NI
  3. PROCHLORPERAZINE. [Concomitant]
     Active Substance: PROCHLORPERAZINE
     Indication: NAUSEA
     Dosage: AS NEEDED
     Route: 048
  4. COLECALCIFEROL/CALCIUM CARBONATE/SODIUM [Concomitant]
     Dosage: 600 MG/200 U
     Route: 048
  5. XARELTO [Concomitant]
     Active Substance: RIVAROXABAN
     Route: 048
  6. PYRIDOXINE [Concomitant]
     Active Substance: PYRIDOXINE
     Route: 048
  7. FOLIC ACID. [Concomitant]
     Active Substance: FOLIC ACID
     Route: 048
  8. OXYCODONE [Concomitant]
     Active Substance: OXYCODONE
     Dosage: 1 TAB Q 6-8 HRS IF NEEDED
     Route: 048
  9. MUCOMYST [Concomitant]
     Active Substance: ACETYLCYSTEINE
     Dosage: 200 MG/ML (20%) SOLUTION
     Route: 048
  10. COREG [Concomitant]
     Active Substance: CARVEDILOL
     Dosage: 1 AT HS WITH FOOD
     Route: 048
  11. PRAVASTATIN SODIUM. [Concomitant]
     Active Substance: PRAVASTATIN SODIUM
     Dosage: QHS
     Route: 048
  12. LONSURF [Suspect]
     Active Substance: TIPIRACIL HYDROCHLORIDE\TRIFLURIDINE
     Indication: COLON CANCER METASTATIC
     Route: 048
     Dates: start: 20160805, end: 20161019
  13. CYANOCOBALAMIN. [Concomitant]
     Active Substance: CYANOCOBALAMIN
     Route: 048
  14. OCUVITE [Concomitant]
     Active Substance: VITAMINS
     Route: 048
  15. RANITIDINE. [Concomitant]
     Active Substance: RANITIDINE
     Route: 048
  16. PROCRIT [Concomitant]
     Active Substance: ERYTHROPOIETIN
     Indication: RENAL IMPAIRMENT
     Dosage: FOR HEMOGLOBIN UNDER 12
  17. GELCLAIR [Concomitant]
     Dosage: 1 APPLICATION TO AFFECTED MUCOSAL AREA
     Route: 048
  18. ZOFRAN [Concomitant]
     Active Substance: ONDANSETRON HYDROCHLORIDE
     Indication: NAUSEA
     Dosage: DISINTEGRATING TABLET - AS NEEDED
     Route: 048
  19. KRILL OIL [Concomitant]
     Active Substance: DIETARY SUPPLEMENT
     Route: 048

REACTIONS (7)
  - White blood cell count decreased [Unknown]
  - Drug ineffective [Not Recovered/Not Resolved]
  - Aspartate aminotransferase increased [Not Recovered/Not Resolved]
  - Pain in extremity [Recovering/Resolving]
  - Red blood cell count decreased [Unknown]
  - Neutropenia [Recovered/Resolved]
  - Carcinoembryonic antigen increased [Unknown]

NARRATIVE: CASE EVENT DATE: 2016
